FAERS Safety Report 13962701 (Version 2)
Quarter: 2017Q3

REPORT INFORMATION
  Report Type: Spontaneous
  Country: SE (occurrence: SE)
  Receive Date: 20170913
  Receipt Date: 20170915
  Transmission Date: 20171128
  Serious: Yes (Disabling)
  Sender: FDA-Public Use
  Company Number: SE-009507513-1709SWE002696

PATIENT
  Age: 53 Year
  Sex: Female
  Weight: 72 kg

DRUGS (1)
  1. NASONEX [Suspect]
     Active Substance: MOMETASONE FUROATE
     Indication: SINUS CONGESTION
     Dosage: UNK UNK, BID
     Dates: start: 20170314, end: 20170325

REACTIONS (3)
  - Anosmia [Recovered/Resolved with Sequelae]
  - Parosmia [Recovered/Resolved with Sequelae]
  - Nasal mucosal ulcer [Recovered/Resolved with Sequelae]

NARRATIVE: CASE EVENT DATE: 201703
